FAERS Safety Report 7352138-7 (Version None)
Quarter: 2011Q1

REPORT INFORMATION
  Report Type: 
  Country: None (occurrence: None)
  Receive Date: 20110315
  Receipt Date: 20100723
  Transmission Date: 20110831
  Serious: Yes (Hospitalization, Other)
  Sender: FDA-Public Use
  Company Number: US-BAYER-201018590NA

PATIENT
  Sex: Female
  Weight: 56.689 kg

DRUGS (5)
  1. IMITREX [Concomitant]
  2. ZOMIG [Concomitant]
  3. YASMIN [Suspect]
     Indication: ACNE
     Dosage: UNK UNK, UNK
     Route: 048
     Dates: start: 20010101
  4. YAZ [Suspect]
     Indication: ACNE
     Dosage: UNK UNK, UNK
     Route: 048
  5. TOPAMAX [Concomitant]

REACTIONS (7)
  - NAUSEA [None]
  - VOMITING [None]
  - ABDOMINAL PAIN [None]
  - KIDNEY INFECTION [None]
  - CHOLELITHIASIS [None]
  - NEPHROLITHIASIS [None]
  - ENDOMETRIOSIS [None]
